FAERS Safety Report 9498933 (Version 1)
Quarter: 2013Q3

REPORT INFORMATION
  Report Type: Spontaneous
  Country: US (occurrence: US)
  Receive Date: 20130904
  Receipt Date: 20130904
  Transmission Date: 20140515
  Serious: Yes (Congenital Anomaly, Other)
  Sender: FDA-Public Use
  Company Number: US-ELI_LILLY_AND_COMPANY-US201308008702

PATIENT
  Sex: 0

DRUGS (1)
  1. SARAFEM [Suspect]
     Dosage: 20 MG, UNKNOWN
     Route: 064

REACTIONS (3)
  - Atrial septal defect [Unknown]
  - Atrioventricular block [Unknown]
  - Foetal exposure during pregnancy [Unknown]
